FAERS Safety Report 14179377 (Version 1)
Quarter: 2017Q4

REPORT INFORMATION
  Report Type: Spontaneous
  Country: IL (occurrence: IL)
  Receive Date: 20171110
  Receipt Date: 20171110
  Transmission Date: 20180321
  Serious: Yes (Other)
  Sender: FDA-Public Use
  Company Number: IL-PFIZER INC-2017479012

PATIENT
  Age: 88 Year
  Sex: Male

DRUGS (1)
  1. SOLU-CORTEF [Suspect]
     Active Substance: HYDROCORTISONE SODIUM SUCCINATE

REACTIONS (1)
  - Delirium [Unknown]
